FAERS Safety Report 18736821 (Version 1)
Quarter: 2021Q1

REPORT INFORMATION
  Report Type: Spontaneous
  Country: IT (occurrence: IT)
  Receive Date: 20210113
  Receipt Date: 20210113
  Transmission Date: 20210419
  Serious: Yes (Other)
  Sender: FDA-Public Use
  Company Number: IT-TEVA-2021-IT-1868383

PATIENT
  Age: 71 Year
  Sex: Female

DRUGS (2)
  1. CARBOPLATINO TEVA [Suspect]
     Active Substance: CARBOPLATIN
     Indication: OVARIAN CANCER
     Dosage: 425.7 MG
     Route: 041
     Dates: start: 20201120, end: 20201120
  2. RANITIDINA HEXAL [Concomitant]
     Active Substance: RANITIDINE HYDROCHLORIDE
     Dosage: 50 MG
     Route: 041
     Dates: start: 20201120, end: 20201120

REACTIONS (2)
  - Dyspnoea [Unknown]
  - Throat tightness [Unknown]

NARRATIVE: CASE EVENT DATE: 20201120
